FAERS Safety Report 8876645 (Version 2)
Quarter: 2013Q1

REPORT INFORMATION
  Report Type: Spontaneous
  Country: IT (occurrence: IT)
  Receive Date: 20121030
  Receipt Date: 20130226
  Transmission Date: 20140127
  Serious: Yes (Life-Threatening)
  Sender: FDA-Public Use
  Company Number: IT-ROCHE-1146764

PATIENT
  Age: 49 Year
  Sex: Male

DRUGS (5)
  1. VESANOID [Suspect]
     Indication: ACUTE LEUKAEMIA
     Route: 048
     Dates: start: 20121006, end: 20121010
  2. DEXAMETHASONE [Concomitant]
     Route: 065
     Dates: start: 20121006, end: 20121006
  3. PANTOPRAZOLE [Concomitant]
     Route: 065
  4. PREDNISONE [Concomitant]
     Route: 065
     Dates: start: 20121007, end: 20121017
  5. NORMIX [Concomitant]
     Route: 065

REACTIONS (5)
  - Alveolitis [Recovering/Resolving]
  - White blood cell count increased [Recovering/Resolving]
  - Cough [Recovering/Resolving]
  - Dyspnoea [Recovering/Resolving]
  - Haemoptysis [Recovering/Resolving]
